FAERS Safety Report 21248292 (Version 3)
Quarter: 2022Q4

REPORT INFORMATION
  Report Type: Spontaneous
  Country: US (occurrence: US)
  Receive Date: 20220824
  Receipt Date: 20221003
  Transmission Date: 20230113
  Serious: No
  Sender: FDA-Public Use
  Company Number: US-NOVARTISTESTPH-NVSC2022US188408

PATIENT

DRUGS (2)
  1. LETROZOLE [Suspect]
     Active Substance: LETROZOLE
     Indication: Product used for unknown indication
     Dosage: UNK
     Route: 065
  2. IBRANCE [Suspect]
     Active Substance: PALBOCICLIB
     Indication: Breast cancer
     Dosage: 75 MG, QD
     Route: 048
     Dates: start: 20220717

REACTIONS (14)
  - Rash erythematous [Unknown]
  - Fatigue [Unknown]
  - Full blood count decreased [Unknown]
  - Arthralgia [Unknown]
  - Dysstasia [Unknown]
  - Decreased appetite [Unknown]
  - Weight decreased [Unknown]
  - Mood swings [Unknown]
  - White blood cell count decreased [Unknown]
  - Dyspnoea [Unknown]
  - Alopecia [Unknown]
  - Nasopharyngitis [Unknown]
  - Oral pain [Unknown]
  - Off label use [Unknown]
